FAERS Safety Report 5163792-2 (Version None)
Quarter: 2006Q4

REPORT INFORMATION
  Report Type: 
  Country: None (occurrence: None)
  Receive Date: 20061124
  Receipt Date: 20061109
  Transmission Date: 20070319
  Serious: Yes (Hospitalization, Other)
  Sender: FDA-Public Use
  Company Number: 2006143009

PATIENT
  Age: 60 Year
  Sex: Male
  Weight: 131.5431 kg

DRUGS (2)
  1. CELEBREX [Suspect]
     Indication: ARTHRITIS
     Dosage: 200 MG (200 MG,1 IN 1 D)
     Dates: start: 20021014, end: 20021213
  2. CELEBREX [Suspect]
     Indication: PAIN
     Dosage: 200 MG (200 MG,1 IN 1 D)
     Dates: start: 20021014, end: 20021213

REACTIONS (3)
  - DEPRESSION [None]
  - HALLUCINATION, VISUAL [None]
  - MYOCARDIAL INFARCTION [None]
